FAERS Safety Report 17290502 (Version 2)
Quarter: 2020Q1

REPORT INFORMATION
  Report Type: Report from Study
  Country: JP (occurrence: JP)
  Receive Date: 20200121
  Receipt Date: 20200124
  Transmission Date: 20200409
  Serious: Yes (Hospitalization, Other)
  Sender: FDA-Public Use
  Company Number: JP-ROCHE-2521556

PATIENT
  Age: 77 Year
  Sex: Female

DRUGS (13)
  1. OLOPATADINE HYDROCHLORIDE. [Concomitant]
     Active Substance: OLOPATADINE HYDROCHLORIDE
     Indication: PRURITUS
     Route: 048
     Dates: start: 20190926
  2. BEVACIZUMAB. [Suspect]
     Active Substance: BEVACIZUMAB
     Indication: LUNG ADENOCARCINOMA
     Dosage: DOSE INTERVAL UNCERTAINTY
     Route: 041
     Dates: start: 20190927, end: 20191023
  3. LOXOPROFEN NA [Suspect]
     Active Substance: LOXOPROFEN SODIUM
     Indication: PROPHYLAXIS
     Route: 048
     Dates: start: 20191011, end: 20191028
  4. CARBOPLATIN. [Concomitant]
     Active Substance: CARBOPLATIN
     Indication: LUNG ADENOCARCINOMA
     Dosage: DOSE INTERVAL UNCERTAINTY
     Route: 041
     Dates: start: 20190927
  5. ZOLPIDEM TARTRATE. [Concomitant]
     Active Substance: ZOLPIDEM TARTRATE
     Indication: INSOMNIA
     Route: 048
  6. TOPSYM [Concomitant]
     Indication: PROPHYLAXIS
     Route: 062
     Dates: start: 20191007
  7. PACLITAXEL. [Concomitant]
     Active Substance: PACLITAXEL
     Indication: LUNG ADENOCARCINOMA
     Dosage: DOSE INTERVAL UNCERTAINTY
     Route: 041
     Dates: start: 20190927
  8. CANDESARTAN. [Concomitant]
     Active Substance: CANDESARTAN
     Indication: HYPERTENSION
     Route: 048
     Dates: end: 20191028
  9. HACHIAZULE [SODIUM GUALENATE] [Concomitant]
     Indication: PROPHYLAXIS
     Route: 048
     Dates: start: 20191011
  10. ATEZOLIZUMAB. [Suspect]
     Active Substance: ATEZOLIZUMAB
     Indication: LUNG ADENOCARCINOMA
     Dosage: DOSE INTERVAL UNCERTAINTY
     Route: 041
     Dates: start: 20190927
  11. ACETAMINOPHEN. [Suspect]
     Active Substance: ACETAMINOPHEN
     Indication: PROPHYLAXIS
     Route: 065
     Dates: start: 20191011, end: 20191028
  12. AMLODIPINE [Concomitant]
     Active Substance: AMLODIPINE BESYLATE
     Indication: HYPERTENSION
     Route: 048
  13. DERMOVATE [Concomitant]
     Active Substance: CLOBETASOL
     Indication: PROPHYLAXIS
     Route: 062
     Dates: start: 20191007

REACTIONS (3)
  - Electrolyte imbalance [Recovering/Resolving]
  - Gastrooesophageal reflux disease [Unknown]
  - Duodenal ulcer haemorrhage [Recovered/Resolved]

NARRATIVE: CASE EVENT DATE: 20191024
